FAERS Safety Report 5043597-3 (Version None)
Quarter: 2006Q2

REPORT INFORMATION
  Report Type: 
  Country: None (occurrence: None)
  Receive Date: 20060628
  Receipt Date: 20060620
  Transmission Date: 20061013
  Serious: Yes (Hospitalization, Other)
  Sender: FDA-Public Use
  Company Number: 2006-140486-NL

PATIENT
  Age: 81 Year
  Sex: Male

DRUGS (2)
  1. MIRTAZAPINE [Suspect]
     Indication: DEPRESSION
     Dosage: 45  MG QD ORAL
     Route: 048
     Dates: start: 20041112, end: 20041210
  2. LATANOPROST [Concomitant]

REACTIONS (2)
  - CELLULITIS [None]
  - FEBRILE NEUTROPENIA [None]
